FAERS Safety Report 18652038 (Version 1)
Quarter: 2020Q4

REPORT INFORMATION
  Report Type: Report from Study
  Country: CA (occurrence: CA)
  Receive Date: 20201223
  Receipt Date: 20201223
  Transmission Date: 20210114
  Serious: Yes (Hospitalization, Other)
  Sender: FDA-Public Use
  Company Number: CA-JNJFOC-20201216310

PATIENT
  Age: 52 Year
  Sex: Male

DRUGS (1)
  1. REMICADE [Suspect]
     Active Substance: INFLIXIMAB
     Indication: CROHN^S DISEASE
     Route: 042
     Dates: start: 20130213

REACTIONS (3)
  - Rectal abscess [Not Recovered/Not Resolved]
  - Gastroenteritis salmonella [Recovering/Resolving]
  - Intestinal obstruction [Unknown]

NARRATIVE: CASE EVENT DATE: 20201207
